FAERS Safety Report 24120183 (Version 5)
Quarter: 2025Q2

REPORT INFORMATION
  Report Type: Spontaneous
  Country: IN (occurrence: IN)
  Receive Date: 20240722
  Receipt Date: 20250606
  Transmission Date: 20250717
  Serious: Yes (Other)
  Sender: PFIZER
  Company Number: IN-PFIZER INC-2020337682

PATIENT
  Age: 48 Year
  Sex: Female
  Weight: 63 kg

DRUGS (7)
  1. SUTENT [Suspect]
     Active Substance: SUNITINIB MALATE
     Indication: Gastrointestinal stromal tumour
     Route: 048
     Dates: start: 20200122
  2. SUTENT [Suspect]
     Active Substance: SUNITINIB MALATE
     Route: 048
     Dates: start: 202001
  3. SUTENT [Suspect]
     Active Substance: SUNITINIB MALATE
     Dates: end: 202202
  4. SUTENT [Suspect]
     Active Substance: SUNITINIB MALATE
     Dates: start: 20220210
  5. SUTENT [Suspect]
     Active Substance: SUNITINIB MALATE
  6. SUTENT [Suspect]
     Active Substance: SUNITINIB MALATE
     Route: 048
     Dates: start: 202501
  7. SUTENT [Suspect]
     Active Substance: SUNITINIB MALATE
     Dosage: 50 MG, 1X/DAY
     Route: 048

REACTIONS (17)
  - Seizure [Unknown]
  - Lacunar infarction [Unknown]
  - Gastrointestinal stromal tumour [Unknown]
  - Malignant neoplasm progression [Unknown]
  - Pain [Unknown]
  - Product prescribing error [Unknown]
  - Oropharyngeal pain [Unknown]
  - Mouth ulceration [Unknown]
  - Swelling face [Unknown]
  - Back pain [Unknown]
  - Performance status decreased [Unknown]
  - Eastern Cooperative Oncology Group performance status worsened [Unknown]
  - Inflammation [Unknown]
  - Mucosal inflammation [Unknown]
  - Oral mucosal blistering [Unknown]
  - Red blood cell count decreased [Unknown]
  - Haemoglobin decreased [Unknown]

NARRATIVE: CASE EVENT DATE: 20240101
